FAERS Safety Report 6084788-2 (Version None)
Quarter: 2009Q1

REPORT INFORMATION
  Report Type: 
  Country: None (occurrence: None)
  Receive Date: 20090217
  Receipt Date: 20090204
  Transmission Date: 20090719
  Serious: No
  Sender: FDA-Public Use
  Company Number: 172125

PATIENT
  Age: 46 Year
  Sex: Female

DRUGS (1)
  1. PACLITAXEL [Suspect]
     Indication: BREAST CANCER
     Dosage: 300 MG, PER CYCLE, INTRAVENOUS (NOT OTHERWISE SPECIFIED)
     Route: 042
     Dates: start: 20090109, end: 20090126

REACTIONS (5)
  - BACK PAIN [None]
  - CHEST PAIN [None]
  - FLUSHING [None]
  - HEADACHE [None]
  - VOMITING [None]
